FAERS Safety Report 24403412 (Version 1)
Quarter: 2024Q4

REPORT INFORMATION
  Report Type: Report from Study
  Country: AR (occurrence: AR)
  Receive Date: 20241007
  Receipt Date: 20241007
  Transmission Date: 20250115
  Serious: Yes (Hospitalization, Other)
  Sender: TAKEDA
  Company Number: AR-TAKEDA-2024TUS097717

PATIENT
  Age: 15 Year
  Sex: Male

DRUGS (1)
  1. HUMAN IMMUNOGLOBULIN G\HYALURONIDASE RECOMBINANT HUMAN [Suspect]
     Active Substance: HUMAN IMMUNOGLOBULIN G\HYALURONIDASE (HUMAN RECOMBINANT)
     Indication: Immunodeficiency common variable
     Dosage: UNK UNK, Q4WEEKS
     Route: 058
     Dates: start: 20240502

REACTIONS (1)
  - Pneumonia pseudomonal [Recovering/Resolving]

NARRATIVE: CASE EVENT DATE: 20240926
